FAERS Safety Report 13649160 (Version 1)
Quarter: 2017Q2

REPORT INFORMATION
  Report Type: Report from Study
  Country: US (occurrence: US)
  Receive Date: 20170613
  Receipt Date: 20170613
  Transmission Date: 20170830
  Serious: Yes (Other)
  Sender: FDA-Public Use
  Company Number: US-GILEAD-2017-0277057

PATIENT
  Age: 63 Year
  Sex: Female

DRUGS (1)
  1. IDELALISIB [Suspect]
     Active Substance: IDELALISIB
     Indication: B-CELL LYMPHOMA STAGE II
     Dosage: 150 MG, BID
     Route: 048
     Dates: start: 20170522

REACTIONS (4)
  - Pain [Unknown]
  - Contusion [Unknown]
  - Dry mouth [Unknown]
  - Lymphadenectomy [Unknown]
